FAERS Safety Report 15254835 (Version 4)
Quarter: 2018Q4

REPORT INFORMATION
  Report Type: Spontaneous
  Country: US (occurrence: US)
  Receive Date: 20180808
  Receipt Date: 20181008
  Transmission Date: 20190204
  Serious: Yes (Hospitalization)
  Sender: FDA-Public Use
  Company Number: US-HORIZON-ACT-0239-2018

PATIENT
  Age: 31 Year
  Sex: Male

DRUGS (4)
  1. CIPRO [Concomitant]
     Active Substance: CIPROFLOXACIN HYDROCHLORIDE
  2. CLINDAMYCIN. [Concomitant]
     Active Substance: CLINDAMYCIN
  3. ACTIMMUNE [Suspect]
     Active Substance: INTERFERON GAMMA-1B
     Indication: OSTEOPETROSIS
     Dosage: 0.35 ML THREE TIMES A WEEK
     Route: 058
     Dates: start: 201807, end: 201807
  4. AMOXICILLIN. [Concomitant]
     Active Substance: AMOXICILLIN
     Dosage: 500 MG TWICE A DAY

REACTIONS (2)
  - Infection [Recovered/Resolved]
  - Parotid gland enlargement [Recovered/Resolved]

NARRATIVE: CASE EVENT DATE: 20180721
